FAERS Safety Report 15632008 (Version 11)
Quarter: 2021Q4

REPORT INFORMATION
  Report Type: Spontaneous
  Country: US (occurrence: US)
  Receive Date: 20181119
  Receipt Date: 20211112
  Transmission Date: 20220304
  Serious: Yes (Hospitalization, Other)
  Sender: FDA-Public Use
  Company Number: US-PFIZER INC-2017230636

PATIENT
  Age: 65 Year
  Sex: Female
  Weight: 65 kg

DRUGS (20)
  1. LYRICA [Suspect]
     Active Substance: PREGABALIN
     Indication: Polyneuropathy
     Dosage: 75 MG, 3X/DAY
     Route: 048
  2. LYRICA [Suspect]
     Active Substance: PREGABALIN
     Indication: Fall
     Dosage: 75 MG, 3X/DAY
     Route: 048
     Dates: start: 2007
  3. LYRICA [Suspect]
     Active Substance: PREGABALIN
     Indication: Neuropathy peripheral
  4. LYRICA [Suspect]
     Active Substance: PREGABALIN
     Indication: Peripheral sensory neuropathy
  5. NORTRIPTYLINE [Concomitant]
     Active Substance: NORTRIPTYLINE
     Indication: Neuropathy peripheral
     Dosage: 50 MG, 1X/DAY (QHS, TWO CAPSULES BEFORE BED)
  6. NORTRIPTYLINE [Concomitant]
     Active Substance: NORTRIPTYLINE
     Dosage: 25 MG, 1X/DAY
     Dates: start: 2005
  7. PAMELOR [Concomitant]
     Active Substance: NORTRIPTYLINE HYDROCHLORIDE
     Dosage: UNK
  8. ICAPS PLUS [ASCORBIC ACID;COPPER;CYSTEINE;MANGANESE;RETINOL;SELENIUM;T [Concomitant]
     Dosage: UNK
     Dates: end: 20180522
  9. PROPRANOLOL [Concomitant]
     Active Substance: PROPRANOLOL HYDROCHLORIDE
     Dosage: 60 MG, DAILY
  10. OXYBUTYNIN [Concomitant]
     Active Substance: OXYBUTYNIN
     Indication: Urinary tract infection
     Dosage: 10 MG, DAILY (1 DAILY 9:00 AM)
  11. ZEGERID OTC [Concomitant]
     Active Substance: OMEPRAZOLE\SODIUM BICARBONATE
     Indication: Diarrhoea
     Dosage: UNK UNK, 2X/DAY,(40 MG/1100 MG 1 MORNING, 1 AT BEDTIME)
  12. MINERALS\OMEGA-3 FATTY ACIDS\VITAMINS [Concomitant]
     Active Substance: MINERALS\OMEGA-3 FATTY ACIDS\VITAMINS
     Indication: Dry eye
     Dosage: 3 DF, 1X/DAY,(3 SOFTGELS A DAY)
  13. ESCITALOPRAM [Concomitant]
     Active Substance: ESCITALOPRAM OXALATE
     Dosage: 5 MG, DAILY
  14. KAOPECTATE [Concomitant]
     Active Substance: BISMUTH SUBSALICYLATE
     Indication: Diarrhoea
     Dosage: UNK UNK, 2X/DAY (TAKE 1 AT 6 AND 1 AT 10)
  15. ASPIRIN [Concomitant]
     Active Substance: ASPIRIN
     Dosage: 81 MG, DAILY
  16. POTASSIUM [Concomitant]
     Active Substance: POTASSIUM
     Dosage: 10 MG, DAILY
  17. CRANBERRY [Concomitant]
     Active Substance: CRANBERRY
     Indication: Urinary tract infection
     Dosage: 300 MG, 3X/DAY
  18. CHOLESTYRAMINE [Concomitant]
     Active Substance: CHOLESTYRAMINE
     Indication: Diarrhoea
     Dosage: UNK, 1X/DAY ,(1 SCOOPFUL/WITH WATER OR NON CARBONATE BEVERAGE AFTER LUNCH)
  19. ATROPINE\DIPHENOXYLATE [Concomitant]
     Active Substance: ATROPINE\DIPHENOXYLATE
     Indication: Diarrhoea
     Dosage: 2.5 MG, 2X/DAY (TAKE 1 AT 6 AND 1 AT 10)
  20. FIBER [Concomitant]
     Active Substance: PSYLLIUM HUSK
     Indication: Diarrhoea
     Dosage: 1250 MG, DAILY (AT 2 CAPSULES A DAY)

REACTIONS (12)
  - Pneumonia [Recovered/Resolved]
  - Pleural effusion [Recovered/Resolved]
  - Blood pressure increased [Recovered/Resolved]
  - Diarrhoea [Not Recovered/Not Resolved]
  - Illness [Unknown]
  - Urine analysis abnormal [Unknown]
  - Emotional disorder [Unknown]
  - Urinary tract infection [Unknown]
  - Tremor [Unknown]
  - Fall [Unknown]
  - Memory impairment [Unknown]
  - Nervousness [Unknown]

NARRATIVE: CASE EVENT DATE: 20010101
